FAERS Safety Report 11415109 (Version 1)
Quarter: 2015Q3

REPORT INFORMATION
  Report Type: Spontaneous
  Country: US (occurrence: None)
  Receive Date: 20150824
  Receipt Date: 20150824
  Transmission Date: 20151125
  Serious: No
  Sender: FDA-Public Use
  Company Number: None

PATIENT
  Age: 52 Year
  Sex: Female
  Weight: 68.04 kg

DRUGS (2)
  1. VITAMINS [Concomitant]
     Active Substance: VITAMINS
  2. ESTRADIOL TRANSDERMAL SYSTEM [Suspect]
     Active Substance: ESTRADIOL
     Indication: MENOPAUSAL SYMPTOMS
     Dosage: 1 PATCH  APPLIED AS MEDICATED PATCH TO SKIN?3-4 MONTHS

REACTIONS (7)
  - Product substitution issue [None]
  - Arthralgia [None]
  - Lethargy [None]
  - Pain [None]
  - Hot flush [None]
  - Mood swings [None]
  - Discomfort [None]

NARRATIVE: CASE EVENT DATE: 20150821
